FAERS Safety Report 13591795 (Version 2)
Quarter: 2017Q2

REPORT INFORMATION
  Report Type: Spontaneous
  Country: IT (occurrence: IT)
  Receive Date: 20170529
  Receipt Date: 20170602
  Transmission Date: 20170830
  Serious: Yes (Other)
  Sender: FDA-Public Use
  Company Number: IT-TEVA-771459ACC

PATIENT
  Age: 56 Year
  Sex: Female

DRUGS (3)
  1. CARBOPLATINO TEVA - IV 45 ML 10 MG/ML - TEVA PHARMA B.V. [Suspect]
     Active Substance: CARBOPLATIN
     Indication: PRODUCT USED FOR UNKNOWN INDICATION
     Dosage: 480 MG TOTAL
     Route: 042
     Dates: start: 20170321, end: 20170321
  2. ZOFRAN - 8 MG/4 ML SOLUZIONE INIETTABILE-NOVARTIS FARMA S.P.A [Concomitant]
     Indication: PRODUCT USED FOR UNKNOWN INDICATION
     Dosage: 8 MG
     Route: 042
     Dates: start: 20170321, end: 20170321
  3. SOLDESAM - 8 MG/2 ML SOLUZIONE INIETTABILE-LABORATORIO FARMACOLOGICO M [Concomitant]
     Indication: PRODUCT USED FOR UNKNOWN INDICATION
     Dosage: 8 MG
     Route: 042
     Dates: start: 20170321, end: 20170321

REACTIONS (3)
  - Dizziness [Recovered/Resolved]
  - Palpitations [Recovered/Resolved]
  - Dyspnoea [Recovered/Resolved]

NARRATIVE: CASE EVENT DATE: 20170321
